FAERS Safety Report 12074434 (Version 1)
Quarter: 2016Q1

REPORT INFORMATION
  Report Type: Spontaneous
  Country: FR (occurrence: FR)
  Receive Date: 20160212
  Receipt Date: 20160212
  Transmission Date: 20160526
  Serious: Yes (Hospitalization)
  Sender: FDA-Public Use
  Company Number: FR-JNJFOC-20160211125

PATIENT
  Age: 72 Year
  Sex: Male

DRUGS (1)
  1. IXPRIM [Suspect]
     Active Substance: ACETAMINOPHEN\TRAMADOL HYDROCHLORIDE
     Indication: PAIN
     Route: 048
     Dates: start: 20150930, end: 20151002

REACTIONS (4)
  - Vomiting [Recovered/Resolved]
  - Tonic clonic movements [Recovered/Resolved]
  - Nausea [Recovered/Resolved]
  - Stress cardiomyopathy [Recovering/Resolving]

NARRATIVE: CASE EVENT DATE: 20151002
